FAERS Safety Report 25897123 (Version 2)
Quarter: 2025Q4

REPORT INFORMATION
  Report Type: Spontaneous
  Country: US (occurrence: US)
  Receive Date: 20251008
  Receipt Date: 20251120
  Transmission Date: 20260117
  Serious: Yes (Hospitalization)
  Sender: CSL BEHRING
  Company Number: US-BEH-2025220020

PATIENT
  Sex: Female

DRUGS (8)
  1. ANDEMBRY [Suspect]
     Active Substance: GARADACIMAB-GXII
     Dosage: 400 MG, SINGLE
     Route: 058
  2. ANDEMBRY [Suspect]
     Active Substance: GARADACIMAB-GXII
     Dosage: 200 MG (200 MG/ML), QMT
     Route: 058
     Dates: start: 20250909
  3. ALBUTEROL [Concomitant]
     Active Substance: ALBUTEROL
  4. ALLEGRA [Concomitant]
     Active Substance: FEXOFENADINE HYDROCHLORIDE
  5. BREZTRI [Concomitant]
     Active Substance: BUDESONIDE\FORMOTEROL\GLYCOPYRROLATE
  6. DANAZOL [Concomitant]
     Active Substance: DANAZOL
  7. EPIPEN [Concomitant]
     Active Substance: EPINEPHRINE
  8. HAEGARDA [Concomitant]
     Active Substance: HUMAN C1-ESTERASE INHIBITOR
     Dosage: UNK
     Route: 065

REACTIONS (10)
  - Hereditary angioedema [Unknown]
  - Dry skin [Unknown]
  - Abnormal weight gain [Unknown]
  - Abdominal pain [Unknown]
  - Abdominal distension [Unknown]
  - Dyspepsia [Unknown]
  - Gastrooesophageal reflux disease [Unknown]
  - Fatigue [Unknown]
  - Thirst [Unknown]
  - Dry mouth [Unknown]
